FAERS Safety Report 12507646 (Version 1)
Quarter: 2016Q2

REPORT INFORMATION
  Report Type: Report from Study
  Country: BR (occurrence: BR)
  Receive Date: 20160629
  Receipt Date: 20160629
  Transmission Date: 20160815
  Serious: Yes (Death)
  Sender: FDA-Public Use
  Company Number: PHHY2016BR088701

PATIENT
  Sex: Female
  Weight: 51 kg

DRUGS (1)
  1. EXELON PATCH [Suspect]
     Active Substance: RIVASTIGMINE
     Indication: DEMENTIA ALZHEIMER^S TYPE
     Dosage: PATCH 5CM2 (4.6 MG, QD)
     Route: 062

REACTIONS (2)
  - Pneumonia [Fatal]
  - Asthma [Unknown]
